FAERS Safety Report 16828864 (Version 1)
Quarter: 2019Q3

REPORT INFORMATION
  Report Type: Spontaneous
  Country: IT (occurrence: IT)
  Receive Date: 20190919
  Receipt Date: 20190919
  Transmission Date: 20191005
  Serious: Yes (Hospitalization)
  Sender: FDA-Public Use
  Company Number: IT-JNJFOC-20190915052

PATIENT
  Age: 5 Year
  Sex: Male
  Weight: 12 kg

DRUGS (1)
  1. RISPERDAL [Suspect]
     Active Substance: RISPERIDONE
     Indication: ENCEPHALOPATHY
     Route: 048
     Dates: start: 20190802, end: 20190802

REACTIONS (5)
  - Medication error [Recovering/Resolving]
  - Off label use [Unknown]
  - Depressed level of consciousness [Recovering/Resolving]
  - Product use in unapproved indication [Unknown]
  - Sopor [Recovering/Resolving]

NARRATIVE: CASE EVENT DATE: 20190802
